FAERS Safety Report 4349725-7 (Version None)
Quarter: 2004Q1

REPORT INFORMATION
  Report Type: 
  Country: None (occurrence: None)
  Receive Date: 20040329
  Receipt Date: 20040218
  Transmission Date: 20041129
  Serious: No
  Sender: FDA-Public Use
  Company Number: USA040157586

PATIENT
  Age: 8 Year
  Sex: Male
  Weight: 45 kg

DRUGS (5)
  1. STRATTERA [Suspect]
     Indication: ATTENTION DEFICIT/HYPERACTIVITY DISORDER
     Dosage: 40 MG/2 DAY
     Dates: start: 20030301
  2. STRATTERA [Suspect]
     Indication: SENSORY DISTURBANCE
     Dosage: 40 MG/2 DAY
     Dates: start: 20030301
  3. PAXIL [Concomitant]
  4. RISPERDAL [Concomitant]
  5. DEPAKOTE [Concomitant]

REACTIONS (5)
  - ABNORMAL BEHAVIOUR [None]
  - DRUG INEFFECTIVE [None]
  - FIGHT IN SCHOOL [None]
  - PRESCRIBED OVERDOSE [None]
  - SUICIDAL IDEATION [None]
